FAERS Safety Report 22334007 (Version 1)
Quarter: 2023Q2

REPORT INFORMATION
  Report Type: Spontaneous
  Country: US (occurrence: US)
  Receive Date: 20230517
  Receipt Date: 20230517
  Transmission Date: 20230722
  Serious: No
  Sender: FDA-Public Use
  Company Number: US-BRISTOL-MYERS SQUIBB COMPANY-2023-069633

PATIENT
  Age: 40 Year
  Sex: Male
  Weight: 98.7 kg

DRUGS (4)
  1. NULOJIX [Suspect]
     Active Substance: BELATACEPT
     Indication: Renal transplant
     Route: 042
  2. NULOJIX [Suspect]
     Active Substance: BELATACEPT
     Route: 042
  3. CELLCEPT [Concomitant]
     Active Substance: MYCOPHENOLATE MOFETIL
     Indication: Product used for unknown indication
  4. TUMS [Concomitant]
     Active Substance: CALCIUM CARBONATE
     Indication: Product used for unknown indication

REACTIONS (1)
  - Weight increased [Unknown]
